FAERS Safety Report 16799242 (Version 1)
Quarter: 2019Q3

REPORT INFORMATION
  Report Type: Spontaneous
  Country: US (occurrence: US)
  Receive Date: 20190912
  Receipt Date: 20190912
  Transmission Date: 20191005
  Serious: No
  Sender: FDA-Public Use
  Company Number: US-PFIZER INC-2019395130

PATIENT
  Age: 54 Year
  Sex: Female
  Weight: 74.38 kg

DRUGS (5)
  1. ATORVASTATIN CALCIUM. [Suspect]
     Active Substance: ATORVASTATIN CALCIUM
     Dosage: 40 MG, 1 TABLET AT BEDTIME
     Route: 048
     Dates: start: 20181121
  2. GABAPENTIN. [Suspect]
     Active Substance: GABAPENTIN
     Dosage: 300 MG, 1 CAPSULE TWO TIMES DAILY
     Route: 048
     Dates: start: 20180302
  3. ZITHROMAX [Suspect]
     Active Substance: AZITHROMYCIN DIHYDRATE
     Dosage: 250 MG, 1 TABLET DAILY
     Dates: start: 20190312
  4. ZITHROMAX [Suspect]
     Active Substance: AZITHROMYCIN DIHYDRATE
     Dosage: 500 MG, (2 TABLETS OF 250 MG) TODAY
     Dates: start: 20190311
  5. ATORVASTATIN CALCIUM. [Suspect]
     Active Substance: ATORVASTATIN CALCIUM
     Dosage: 80 MG, 1 TABLET AT BEDTIME
     Route: 048
     Dates: start: 20190124

REACTIONS (1)
  - Yellow skin [Unknown]
